FAERS Safety Report 5292214-6 (Version None)
Quarter: 2007Q2

REPORT INFORMATION
  Report Type: 
  Country: None (occurrence: None)
  Receive Date: 20070403
  Receipt Date: 20070319
  Transmission Date: 20071010
  Serious: Yes (Hospitalization)
  Sender: FDA-Public Use
  Company Number: 239085

PATIENT
  Age: 47 Year
  Sex: Male
  Weight: 94 kg

DRUGS (2)
  1. AVASTIN [Suspect]
     Indication: COLON CANCER METASTATIC
     Dosage: 5 MG, 2/WEEK, INTRAVENOUS
     Route: 042
     Dates: start: 20041201, end: 20060713
  2. FLUOROURACIL [Concomitant]

REACTIONS (1)
  - PERITONITIS [None]
